FAERS Safety Report 16187919 (Version 1)
Quarter: 2019Q2

REPORT INFORMATION
  Report Type: Spontaneous
  Country: NL (occurrence: NL)
  Receive Date: 20190412
  Receipt Date: 20190412
  Transmission Date: 20190711
  Serious: Yes (Hospitalization, Other)
  Sender: FDA-Public Use
  Company Number: NL-ALKEM LABORATORIES LIMITED-NL-ALKEM-2018-08145

PATIENT
  Age: 29 Year
  Sex: Female

DRUGS (1)
  1. QUETIAPINE FUMARATE. [Suspect]
     Active Substance: QUETIAPINE FUMARATE
     Indication: INTENTIONAL OVERDOSE
     Dosage: 8 DF, UNK
     Route: 048

REACTIONS (5)
  - Poisoning [Unknown]
  - Delirium [Recovering/Resolving]
  - Coma scale abnormal [Unknown]
  - Sinus tachycardia [Unknown]
  - Intentional overdose [Unknown]
